FAERS Safety Report 16706518 (Version 1)
Quarter: 2019Q3

REPORT INFORMATION
  Report Type: Spontaneous
  Country: US (occurrence: US)
  Receive Date: 20190815
  Receipt Date: 20190815
  Transmission Date: 20191004
  Serious: No
  Sender: FDA-Public Use
  Company Number: US-PACIRA-201400245

PATIENT

DRUGS (2)
  1. BETADINE [Concomitant]
     Active Substance: POVIDONE-IODINE
     Indication: PRODUCT USED FOR UNKNOWN INDICATION
     Dosage: IRRIGATION SOLUTION. APPROX 15 ML BETADINE INJECTED INTO 1000 ML BAG OF IRRIGATION SOLUTION
     Route: 065
  2. EXPAREL [Suspect]
     Active Substance: BUPIVACAINE
     Indication: PRODUCT USED FOR UNKNOWN INDICATION
     Route: 065

REACTIONS (1)
  - Intentional product misuse [Unknown]
